FAERS Safety Report 21149555 (Version 1)
Quarter: 2022Q3

REPORT INFORMATION
  Report Type: Spontaneous
  Country: GD (occurrence: GD)
  Receive Date: 20220729
  Receipt Date: 20220729
  Transmission Date: 20221027
  Serious: Yes (Other)
  Sender: FDA-Public Use
  Company Number: GD-GLAXOSMITHKLINE-GD2022GSK112452

PATIENT

DRUGS (6)
  1. ACYCLOVIR [Suspect]
     Active Substance: ACYCLOVIR
     Indication: Herpes simplex
     Dosage: 400 MG, TID
     Route: 064
  2. OXYTOCIN [Suspect]
     Active Substance: OXYTOCIN
     Indication: Product used for unknown indication
     Dosage: LOW DOSE TITRATION AT 2 MU/MINUTE
     Route: 064
  3. OXYTOCIN [Suspect]
     Active Substance: OXYTOCIN
     Dosage: LOW DOSE TITRATION AT 2 MU/30MINUTEUNK
     Route: 064
  4. OXYTOCIN [Suspect]
     Active Substance: OXYTOCIN
     Dosage: LOW DOSE TITRATION AT 4 MU/MINUTE
     Route: 064
  5. DINOPROSTONE [Suspect]
     Active Substance: DINOPROSTONE
     Indication: Labour induction
     Dosage: 10 MG(FOR 12 HOURS)
     Route: 064
  6. UNSPECIFIED INGREDIENT [Suspect]
     Active Substance: UNSPECIFIED INGREDIENT
     Indication: Resuscitation
     Dosage: UNK

REACTIONS (6)
  - Baseline foetal heart rate variability disorder [Unknown]
  - Foetal heart rate deceleration abnormality [Unknown]
  - Foetal heart rate indeterminate [Unknown]
  - Condition aggravated [Unknown]
  - Term birth [Unknown]
  - Foetal exposure during pregnancy [Unknown]
